FAERS Safety Report 21290234 (Version 1)
Quarter: 2022Q3

REPORT INFORMATION
  Report Type: Spontaneous
  Country: None (occurrence: US)
  Receive Date: 20220902
  Receipt Date: 20220902
  Transmission Date: 20221026
  Serious: Yes (Other)
  Sender: FDA-Public Use
  Company Number: US-Empower Pharmacy-2132526

PATIENT
  Age: 29 Year
  Sex: Female
  Weight: 86.364 kg

DRUGS (3)
  1. ASCORBIC ACID [Suspect]
     Active Substance: ASCORBIC ACID
     Route: 042
     Dates: start: 20220728, end: 20220728
  2. Methylcobalamin 10,000mcg/vial [Concomitant]
     Route: 042
     Dates: start: 20220728, end: 20220728
  3. Bacteriostatic Water 1.5% [Concomitant]
     Route: 042
     Dates: start: 20220728, end: 20220728

REACTIONS (1)
  - Hypersensitivity [Recovered/Resolved]

NARRATIVE: CASE EVENT DATE: 20220728
